FAERS Safety Report 9606503 (Version 2)
Quarter: 2013Q4

REPORT INFORMATION
  Report Type: Spontaneous
  Country: US (occurrence: US)
  Receive Date: 20131008
  Receipt Date: 20131008
  Transmission Date: 20140711
  Serious: No
  Sender: FDA-Public Use
  Company Number: US-AMGEN-USASP2013048723

PATIENT
  Age: 78 Year
  Sex: Female
  Weight: 64.4 kg

DRUGS (4)
  1. PROLIA [Suspect]
     Indication: OSTEOPOROSIS POSTMENOPAUSAL
     Dosage: 60 MG, Q6MO
     Route: 065
     Dates: start: 201306
  2. PRILOSEC                           /00661201/ [Concomitant]
  3. CALCIUM [Concomitant]
  4. ANTI HIST [Concomitant]

REACTIONS (2)
  - Fatigue [Unknown]
  - Pain in extremity [Unknown]
